FAERS Safety Report 6247744-7 (Version None)
Quarter: 2009Q2

REPORT INFORMATION
  Report Type: 
  Country: None (occurrence: None)
  Receive Date: 20090626
  Receipt Date: 20090618
  Transmission Date: 20091009
  Serious: Yes (Other)
  Sender: FDA-Public Use
  Company Number: PHHO2008DE14765

PATIENT
  Sex: Male
  Weight: 98 kg

DRUGS (1)
  1. ZOLEDRONIC ACID [Suspect]
     Indication: MULTIPLE MYELOMA
     Dosage: 8 MG, QMO
     Route: 042
     Dates: start: 20041103, end: 20080908

REACTIONS (10)
  - DEBRIDEMENT [None]
  - GINGIVITIS [None]
  - IMPLANT SITE DISCHARGE [None]
  - IMPLANT SITE INFLAMMATION [None]
  - MEDICAL DEVICE REMOVAL [None]
  - MOUTH ULCERATION [None]
  - OSTEONECROSIS [None]
  - PAIN [None]
  - PRIMARY SEQUESTRUM [None]
  - SEQUESTRECTOMY [None]
